FAERS Safety Report 13648277 (Version 36)
Quarter: 2023Q1

REPORT INFORMATION
  Report Type: Spontaneous
  Country: CA (occurrence: CA)
  Receive Date: 20170613
  Receipt Date: 20230328
  Transmission Date: 20230418
  Serious: Yes (Other)
  Sender: FDA-Public Use
  Company Number: CA-CELLTRION INC.-2017CA004746

PATIENT

DRUGS (43)
  1. INFLECTRA [Suspect]
     Active Substance: INFLIXIMAB-DYYB
     Indication: Rheumatoid arthritis
     Dosage: 300 MG, 0, 2, 6  THEN EVERY 8 WEEKS FOR 12 MONTHS
     Route: 042
     Dates: start: 20170222
  2. INFLECTRA [Suspect]
     Active Substance: INFLIXIMAB-DYYB
     Dosage: 300 MG, 0, 2, 6 THEN EVERY 8 WEEKS
     Route: 042
     Dates: start: 20170222, end: 20171128
  3. INFLECTRA [Suspect]
     Active Substance: INFLIXIMAB-DYYB
     Dosage: 252 MG, EVERY 8 WEEKS
     Route: 042
     Dates: start: 20171128
  4. INFLECTRA [Suspect]
     Active Substance: INFLIXIMAB-DYYB
     Dosage: 288 MG, EVERY 8 WEEK
     Route: 042
     Dates: start: 20180123, end: 20180123
  5. INFLECTRA [Suspect]
     Active Substance: INFLIXIMAB-DYYB
     Dosage: 252 MG, EVERY 8 WEEKS
     Route: 042
     Dates: start: 20180123
  6. INFLECTRA [Suspect]
     Active Substance: INFLIXIMAB-DYYB
     Dosage: 282 MG, EVERY 7 WEEKS
     Route: 042
     Dates: start: 20180319, end: 20180508
  7. INFLECTRA [Suspect]
     Active Substance: INFLIXIMAB-DYYB
     Dosage: 282 MG, EVERY 8 WEEKS
     Route: 042
     Dates: start: 20180319
  8. INFLECTRA [Suspect]
     Active Substance: INFLIXIMAB-DYYB
     Dosage: 282 MG, EVERY 7 WEEKS
     Route: 042
     Dates: start: 20180508
  9. INFLECTRA [Suspect]
     Active Substance: INFLIXIMAB-DYYB
     Dosage: UNK
     Route: 042
  10. INFLECTRA [Suspect]
     Active Substance: INFLIXIMAB-DYYB
     Dosage: 282 MG, EVERY 6 WEEKS
     Route: 042
     Dates: start: 20180619, end: 20180802
  11. INFLECTRA [Suspect]
     Active Substance: INFLIXIMAB-DYYB
     Dosage: 282 MG, EVERY 6 WEEKS
     Route: 042
     Dates: start: 20180802
  12. INFLECTRA [Suspect]
     Active Substance: INFLIXIMAB-DYYB
     Dosage: 470 MG, EVERY 6 WEEKS
     Route: 042
     Dates: start: 20180911, end: 20201005
  13. INFLECTRA [Suspect]
     Active Substance: INFLIXIMAB-DYYB
     Dosage: 470 MG, EVERY 6 WEEKS
     Route: 042
     Dates: start: 20180911
  14. INFLECTRA [Suspect]
     Active Substance: INFLIXIMAB-DYYB
     Dosage: 470 MG, EVERY 6 WEEKS
     Route: 042
     Dates: start: 20191217
  15. INFLECTRA [Suspect]
     Active Substance: INFLIXIMAB-DYYB
     Dosage: 470 MG, EVERY 6 WEEKS
     Route: 042
     Dates: start: 20200128
  16. INFLECTRA [Suspect]
     Active Substance: INFLIXIMAB-DYYB
     Dosage: 470 MG, EVERY 6 WEEKS
     Route: 042
     Dates: start: 20200602
  17. INFLECTRA [Suspect]
     Active Substance: INFLIXIMAB-DYYB
     Dosage: 470 MG, EVERY 6 WEEKS
     Route: 042
     Dates: start: 20200713
  18. INFLECTRA [Suspect]
     Active Substance: INFLIXIMAB-DYYB
     Dosage: 470 MG, EVERY 6 WEEKS
     Route: 042
     Dates: start: 20200825
  19. INFLECTRA [Suspect]
     Active Substance: INFLIXIMAB-DYYB
     Dosage: 470 MG, EVERY 6 WEEKS
     Route: 042
     Dates: start: 20201005
  20. INFLECTRA [Suspect]
     Active Substance: INFLIXIMAB-DYYB
     Dosage: 470 MG, EVERY 6 WEEKS
     Route: 042
     Dates: start: 20201117
  21. INFLECTRA [Suspect]
     Active Substance: INFLIXIMAB-DYYB
     Dosage: 500 MG OR 5 MG/KG, EVERY 6 WEEK
     Route: 042
     Dates: start: 20201117, end: 20210914
  22. INFLECTRA [Suspect]
     Active Substance: INFLIXIMAB-DYYB
     Dosage: 470 MG, EVERY 6 WEEKS
     Route: 042
     Dates: start: 20201229
  23. INFLECTRA [Suspect]
     Active Substance: INFLIXIMAB-DYYB
     Dosage: 470 MG, EVERY 6 WEEKS
     Route: 042
     Dates: start: 20210208
  24. INFLECTRA [Suspect]
     Active Substance: INFLIXIMAB-DYYB
     Dosage: 470 MG, EVERY 6 WEEKS
     Route: 042
     Dates: start: 20210323
  25. INFLECTRA [Suspect]
     Active Substance: INFLIXIMAB-DYYB
     Dosage: 470 MG, EVERY 6 WEEKS
     Route: 042
     Dates: start: 20210507
  26. INFLECTRA [Suspect]
     Active Substance: INFLIXIMAB-DYYB
     Dosage: 470 MG, EVERY 6 WEEKS
     Route: 042
     Dates: start: 20210615
  27. INFLECTRA [Suspect]
     Active Substance: INFLIXIMAB-DYYB
     Dosage: 470 MG, EVERY 6 WEEKS
     Route: 042
     Dates: start: 20210727
  28. INFLECTRA [Suspect]
     Active Substance: INFLIXIMAB-DYYB
     Dosage: 470 MG, EVERY 6 WEEKS
     Route: 042
     Dates: start: 20210914
  29. INFLECTRA [Suspect]
     Active Substance: INFLIXIMAB-DYYB
     Dosage: 535 MG, 5 MG/KG OR 535 MG, EVERY 6 WEEKS
     Route: 042
     Dates: start: 20211026
  30. INFLECTRA [Suspect]
     Active Substance: INFLIXIMAB-DYYB
     Dosage: 535 MG, 5 MG/KG OR 535 MG, EVERY 6 WEEKS
     Route: 042
     Dates: start: 20211026
  31. INFLECTRA [Suspect]
     Active Substance: INFLIXIMAB-DYYB
     Dosage: 535 MG, 5 MG/KG OR 535 MG, EVERY 6 WEEKS
     Route: 042
     Dates: start: 20211208
  32. INFLECTRA [Suspect]
     Active Substance: INFLIXIMAB-DYYB
     Dosage: 535 MG, 5 MG/KG OR 535 MG, EVERY 6 WEEKS
     Route: 042
     Dates: start: 20220119
  33. INFLECTRA [Suspect]
     Active Substance: INFLIXIMAB-DYYB
     Dosage: 535 MG, 5 MG/KG OR 535 MG, EVERY 6 WEEKS
     Route: 042
     Dates: start: 20220302
  34. INFLECTRA [Suspect]
     Active Substance: INFLIXIMAB-DYYB
     Dosage: 535 MG, 5 MG/KG OR 535 MG, EVERY 6 WEEKS
     Route: 042
     Dates: start: 20220418
  35. INFLECTRA [Suspect]
     Active Substance: INFLIXIMAB-DYYB
     Dosage: 535 MG, 5 MG/KG OR 535 MG, EVERY 6 WEEKS
     Route: 042
     Dates: start: 20220530
  36. INFLECTRA [Suspect]
     Active Substance: INFLIXIMAB-DYYB
     Dosage: 535 MG, 5 MG/KG OR 535 MG, EVERY 6 WEEKS
     Route: 042
     Dates: start: 20220711
  37. INFLECTRA [Suspect]
     Active Substance: INFLIXIMAB-DYYB
     Dosage: 535 MG, 5 MG/KG OR 535 MG, EVERY 6 WEEKS
     Route: 042
     Dates: start: 20220822
  38. INFLECTRA [Suspect]
     Active Substance: INFLIXIMAB-DYYB
     Dosage: 500 MG, EVERY 6 WEEKS
     Route: 042
     Dates: start: 20221004
  39. INFLECTRA [Suspect]
     Active Substance: INFLIXIMAB-DYYB
     Dosage: 492 MG, EVERY 6 WEEKS
     Route: 042
     Dates: start: 20221118
  40. INFLECTRA [Suspect]
     Active Substance: INFLIXIMAB-DYYB
     Dosage: 500 MG, EVERY 6 WEEKS
     Route: 042
     Dates: start: 20221230
  41. INFLECTRA [Suspect]
     Active Substance: INFLIXIMAB-DYYB
     Dosage: 500 MG, EVERY 6 WEEKS
     Route: 042
     Dates: start: 20230207
  42. INFLECTRA [Suspect]
     Active Substance: INFLIXIMAB-DYYB
     Dosage: 500 MG, EVERY 6 WEEKS
     Route: 042
     Dates: start: 20230321
  43. ACETAMINOPHEN [Concomitant]
     Active Substance: ACETAMINOPHEN
     Indication: Premedication
     Dosage: UNK
     Dates: start: 20230207, end: 20230207

REACTIONS (16)
  - Diabetes mellitus [Unknown]
  - Therapeutic response shortened [Unknown]
  - Diarrhoea [Recovering/Resolving]
  - Vomiting [Unknown]
  - Asthenia [Unknown]
  - Pyrexia [Recovered/Resolved]
  - Urinary tract infection [Unknown]
  - Weight decreased [Unknown]
  - Condition aggravated [Unknown]
  - Weight increased [Not Recovered/Not Resolved]
  - Blood pressure diastolic decreased [Not Recovered/Not Resolved]
  - Cough [Recovered/Resolved]
  - Body temperature increased [Not Recovered/Not Resolved]
  - Off label use [Unknown]
  - Off label use [Unknown]
  - Incorrect dose administered [Unknown]

NARRATIVE: CASE EVENT DATE: 20170402
